FAERS Safety Report 5969025-9 (Version None)
Quarter: 2008Q4

REPORT INFORMATION
  Report Type: 
  Country: None (occurrence: None)
  Receive Date: 20081119
  Receipt Date: 20080829
  Transmission Date: 20090506
  Serious: No
  Sender: FDA-Public Use
  Company Number: WAES 0809USA00036

PATIENT
  Age: 80 Year
  Sex: Female

DRUGS (3)
  1. JANUVIA [Suspect]
     Indication: DIABETES MELLITUS
     Dosage: PO
     Route: 048
     Dates: start: 20080101, end: 20080101
  2. HUMALOG [Concomitant]
  3. LANTUS [Concomitant]

REACTIONS (5)
  - ATRIAL FIBRILLATION [None]
  - LIP SWELLING [None]
  - RASH [None]
  - SWELLING FACE [None]
  - SWOLLEN TONGUE [None]
